FAERS Safety Report 6399474-9 (Version None)
Quarter: 2009Q4

REPORT INFORMATION
  Report Type: 
  Country: None (occurrence: None)
  Receive Date: 20091014
  Receipt Date: 20091009
  Transmission Date: 20100525
  Serious: Yes (Life-Threatening, Hospitalization, Other)
  Sender: FDA-Public Use
  Company Number: PHEH2009US13548

PATIENT
  Age: 54 Year
  Sex: Female

DRUGS (1)
  1. ZELNORM [Suspect]

REACTIONS (12)
  - ABDOMINAL PAIN [None]
  - APPARENT DEATH [None]
  - BLOOD PRESSURE DECREASED [None]
  - CAROTID ARTERY OCCLUSION [None]
  - CEREBROVASCULAR ACCIDENT [None]
  - DISABILITY [None]
  - INTESTINAL ISCHAEMIA [None]
  - LOCALISED INTRAABDOMINAL FLUID COLLECTION [None]
  - MONOPLEGIA [None]
  - PARALYSIS [None]
  - SEPTIC SHOCK [None]
  - SURGERY [None]
